FAERS Safety Report 5451012-0 (Version None)
Quarter: 2007Q3

REPORT INFORMATION
  Report Type: 
  Country: None (occurrence: None)
  Receive Date: 20070801
  Receipt Date: 20070604
  Transmission Date: 20080115
  Serious: Yes (Other)
  Sender: FDA-Public Use
  Company Number: 157048USA

PATIENT
  Age: 67 Year
  Sex: Female

DRUGS (5)
  1. GABAPENTIN [Suspect]
     Indication: MUSCLE SPASMS
     Dosage: 200 MG (100 MG, 2 IN 1 D);
     Dates: start: 20050101, end: 20050101
  2. UBIDECARENONE [Concomitant]
  3. SALMO SALAR OIL [Concomitant]
  4. CARISOPRODOL [Concomitant]
  5. CLONAZEPAM [Concomitant]

REACTIONS (2)
  - EYE SWELLING [None]
  - URTICARIA [None]
